FAERS Safety Report 5861421-3 (Version None)
Quarter: 2008Q3

REPORT INFORMATION
  Report Type: 
  Country: None (occurrence: None)
  Receive Date: 20080827
  Receipt Date: 20080418
  Transmission Date: 20090109
  Serious: No
  Sender: FDA-Public Use
  Company Number: US-ABBOTT-08P-163-0447907-00

PATIENT
  Sex: Male
  Weight: 79.45 kg

DRUGS (15)
  1. NIASPAN [Suspect]
     Indication: CARDIOVASCULAR EVENT PROPHYLAXIS
     Route: 048
     Dates: start: 20071001
  2. NIASPAN [Suspect]
     Route: 048
     Dates: start: 20070701
  3. NIASPAN [Suspect]
     Route: 048
  4. NIASPAN [Suspect]
     Route: 048
     Dates: start: 20080404, end: 20080414
  5. NIASPAN [Suspect]
     Route: 048
     Dates: start: 20080414
  6. ESOMEPRAZOLE MAGNESIUM [Concomitant]
     Indication: GASTRIC DISORDER
     Route: 048
  7. LORAZEPAM [Concomitant]
     Indication: DRUG USE FOR UNKNOWN INDICATION
     Route: 048
  8. FLURAZAPAM [Concomitant]
     Indication: SLEEP DISORDER
     Route: 048
  9. ATORVASTATIN CALCIUM [Concomitant]
     Indication: CARDIAC DISORDER
     Route: 048
     Dates: start: 20060101
  10. LISINOPRIL [Concomitant]
     Indication: CARDIAC DISORDER
     Route: 048
     Dates: start: 20080301
  11. ACETYLSALICYLIC ACID SRT [Concomitant]
     Indication: CARDIAC DISORDER
     Route: 048
     Dates: start: 20060101
  12. CIPROFLOXACIN [Concomitant]
     Indication: GASTROINTESTINAL DISORDER
     Route: 048
  13. MERCAPTOPURINE [Concomitant]
     Indication: DRUG USE FOR UNKNOWN INDICATION
     Route: 048
  14. FOLIC ACID [Concomitant]
     Indication: DRUG USE FOR UNKNOWN INDICATION
     Route: 048
  15. BUPROPION HCL [Concomitant]
     Indication: GASTROINTESTINAL MOTILITY DISORDER
     Route: 048

REACTIONS (2)
  - HEPATIC ENZYME INCREASED [None]
  - SIALOADENITIS [None]
